FAERS Safety Report 17128393 (Version 1)
Quarter: 2019Q4

REPORT INFORMATION
  Report Type: Spontaneous
  Country: US (occurrence: US)
  Receive Date: 20191206
  Receipt Date: 20191206
  Transmission Date: 20200122
  Serious: Yes (Disabling)
  Sender: FDA-Public Use
  Company Number: None

PATIENT
  Age: 64 Year
  Sex: Female
  Weight: 63 kg

DRUGS (2)
  1. LEVOFLOXACIN. [Suspect]
     Active Substance: LEVOFLOXACIN
     Indication: URINARY TRACT INFECTION
     Dosage: ?          QUANTITY:5 TABLET(S);?
     Route: 048
  2. VITAMIN + MINERAL SUPPLEMENTS [Concomitant]

REACTIONS (7)
  - Arthralgia [None]
  - Urinary tract infection [None]
  - Gait disturbance [None]
  - Neuralgia [None]
  - Back pain [None]
  - Tendon pain [None]
  - Joint stiffness [None]

NARRATIVE: CASE EVENT DATE: 20190601
